FAERS Safety Report 20421306 (Version 1)
Quarter: 2022Q1

REPORT INFORMATION
  Report Type: Spontaneous
  Country: US (occurrence: None)
  Receive Date: 20220203
  Receipt Date: 20220203
  Transmission Date: 20220423
  Serious: Yes (unspecified)
  Sender: FDA-Public Use
  Company Number: None

PATIENT
  Age: 87 Year
  Sex: Male
  Weight: 108 kg

DRUGS (1)
  1. CIPROFLOXACIN [Suspect]
     Active Substance: CIPROFLOXACIN
     Indication: Surgery
     Dosage: FREQUENCY : ONCE;?
     Route: 042
     Dates: start: 20211021, end: 20211021

REACTIONS (5)
  - Phlebitis superficial [None]
  - Urticaria [None]
  - Rash [None]
  - Erythema multiforme [None]
  - Pruritus [None]

NARRATIVE: CASE EVENT DATE: 20211021
